FAERS Safety Report 11826478 (Version 3)
Quarter: 2016Q1

REPORT INFORMATION
  Report Type: Spontaneous
  Country: JP (occurrence: JP)
  Receive Date: 20151211
  Receipt Date: 20160128
  Transmission Date: 20160525
  Serious: Yes (Other)
  Sender: FDA-Public Use
  Company Number: JP-GLAXOSMITHKLINE-JP2015JPN173890

PATIENT
  Age: 32 Year
  Sex: Female

DRUGS (1)
  1. IMIGRAN SC [Suspect]
     Active Substance: SUMATRIPTAN SUCCINATE
     Dosage: 3 MG, QD
     Route: 058
     Dates: start: 20150608, end: 20150608

REACTIONS (2)
  - Headache [Recovering/Resolving]
  - Reversible cerebral vasoconstriction syndrome [Recovered/Resolved]

NARRATIVE: CASE EVENT DATE: 20150608
